FAERS Safety Report 5983923-1 (Version None)
Quarter: 2008Q4

REPORT INFORMATION
  Report Type: 
  Country: None (occurrence: None)
  Receive Date: 20081208
  Receipt Date: 20081208
  Transmission Date: 20090506
  Serious: Yes (Hospitalization)
  Sender: FDA-Public Use
  Company Number: DE-WYE-G02570108

PATIENT
  Sex: Male
  Weight: 80 kg

DRUGS (3)
  1. TREVILOR RETARD [Suspect]
     Dosage: 50 CAPSULES (OVERDOSE AMOUNT 3750 MG)
     Route: 048
     Dates: start: 20081111, end: 20081111
  2. FLUOXETINE HYDROCHLORIDE [Suspect]
     Dosage: 10 TABLETS (OVERDOSE AMOUNT 200 MG)
     Route: 048
     Dates: start: 20081111, end: 20081111
  3. ALCOHOL [Suspect]
     Dosage: UNKNOWN AMOUNT
     Route: 048
     Dates: start: 20081111, end: 20081111

REACTIONS (9)
  - BLOOD CREATINE PHOSPHOKINASE INCREASED [None]
  - CONVULSION [None]
  - ELECTROCARDIOGRAM QT PROLONGED [None]
  - GASTROINTESTINAL SOUNDS ABNORMAL [None]
  - INTENTIONAL OVERDOSE [None]
  - RESTLESSNESS [None]
  - SOMNOLENCE [None]
  - SUICIDE ATTEMPT [None]
  - TACHYCARDIA [None]
